FAERS Safety Report 17365565 (Version 1)
Quarter: 2020Q1

REPORT INFORMATION
  Report Type: Spontaneous
  Country: US (occurrence: US)
  Receive Date: 20200204
  Receipt Date: 20200204
  Transmission Date: 20200409
  Serious: Yes (Hospitalization)
  Sender: FDA-Public Use
  Company Number: US-ASTRAZENECA-2020SE15042

PATIENT
  Sex: Male

DRUGS (2)
  1. RADIATION [Concomitant]
     Active Substance: RADIATION THERAPY
  2. IMFINZI [Suspect]
     Active Substance: DURVALUMAB
     Indication: NON-SMALL CELL LUNG CANCER STAGE III
     Dosage: EVERY TWO WEEKS
     Route: 042

REACTIONS (3)
  - Pneumonia [Unknown]
  - Lung disorder [Unknown]
  - Pneumonitis [Unknown]
